FAERS Safety Report 9912717 (Version 2)
Quarter: 2014Q2

REPORT INFORMATION
  Report Type: Spontaneous
  Country: US (occurrence: None)
  Receive Date: 20140212
  Receipt Date: 20140418
  Transmission Date: 20141212
  Serious: Yes (Hospitalization)
  Sender: FDA-Public Use
  Company Number: 2014-US-0020

PATIENT
  Age: 60 Year
  Sex: Female
  Weight: 57.61 kg

DRUGS (10)
  1. SANCUSO [Suspect]
     Indication: PROPHYLAXIS OF NAUSEA AND VOMITING
     Route: 061
     Dates: start: 20140128
  2. AVASTIN (SIMVASTATIN) [Concomitant]
  3. DULCOLAX (BISACODYL) [Concomitant]
  4. KEPPRA (LEVETIRACETAM) [Concomitant]
  5. PROTONIX (PANTOPRAZOLE SODIUM) [Concomitant]
  6. TYLENOL (PARACETAMOL) [Concomitant]
  7. MIRTAZAPINE [Concomitant]
  8. TEMOZOLOMIDE [Concomitant]
  9. MORPHINE [Concomitant]
  10. LORAZEPAM [Concomitant]

REACTIONS (5)
  - Chest pain [None]
  - Pain in jaw [None]
  - Dyspnoea [None]
  - Constipation [None]
  - Diarrhoea [None]
